FAERS Safety Report 13690628 (Version 1)
Quarter: 2017Q2

REPORT INFORMATION
  Report Type: Spontaneous
  Country: US (occurrence: US)
  Receive Date: 20170626
  Receipt Date: 20170626
  Transmission Date: 20170830
  Serious: No
  Sender: FDA-Public Use
  Company Number: US-CLOVIS ONCOLOGY-CLO-2017-000252

PATIENT
  Age: 74 Year
  Sex: Female

DRUGS (4)
  1. RUBRACA [Suspect]
     Active Substance: RUCAPARIB CAMSYLATE
     Indication: OVARIAN CANCER
     Dosage: 600 MG, BID
     Route: 048
     Dates: start: 20170403, end: 20170406
  2. CORTISONE ACETATE. [Concomitant]
     Active Substance: CORTISONE ACETATE
     Indication: PRODUCT USED FOR UNKNOWN INDICATION
     Dosage: UNK
     Route: 014
     Dates: start: 20170403, end: 20170403
  3. RUBRACA [Suspect]
     Active Substance: RUCAPARIB CAMSYLATE
     Dosage: 300 MG, BID
     Route: 048
     Dates: start: 20170412
  4. RUBRACA [Suspect]
     Active Substance: RUCAPARIB CAMSYLATE
     Dosage: 600 MG IN THE MORNING AND 300 MG IN THE EVENING
     Route: 048
     Dates: start: 20170414

REACTIONS (6)
  - Feeling hot [Unknown]
  - Constipation [Unknown]
  - Erythema [Unknown]
  - Prescribed underdose [Unknown]
  - Blood pressure increased [Unknown]
  - Rash macular [Unknown]

NARRATIVE: CASE EVENT DATE: 201704
